FAERS Safety Report 11131425 (Version 1)
Quarter: 2015Q2

REPORT INFORMATION
  Report Type: Spontaneous
  Country: FR (occurrence: None)
  Receive Date: 20150520
  Receipt Date: 20150520
  Transmission Date: 20150821
  Serious: Yes (Other)
  Sender: FDA-Public Use
  Company Number: 2015HINLIT0440

PATIENT

DRUGS (3)
  1. RALTEGRAVIR [Suspect]
     Active Substance: RALTEGRAVIR
     Indication: ANTIRETROVIRAL THERAPY
     Dosage: INCREASED TO THEIR BASELINE LEVEL, TRANSPLACENTAL
     Route: 064
  2. RITONAVIR. [Suspect]
     Active Substance: RITONAVIR
     Indication: ANTIRETROVIRAL THERAPY
     Dosage: INCREASED TO THEIR BASELINE LEVEL
     Route: 064
  3. DARUNAVIR [Suspect]
     Active Substance: DARUNAVIR
     Indication: ANTIRETROVIRAL THERAPY
     Dosage: INCREASED TO THEIR BASELINE LEVEL, TRANSPLACENTAL
     Route: 064

REACTIONS (2)
  - Heart rate irregular [None]
  - Maternal drugs affecting foetus [None]
